FAERS Safety Report 14324231 (Version 1)
Quarter: 2017Q4

REPORT INFORMATION
  Report Type: Spontaneous
  Country: CN (occurrence: CN)
  Receive Date: 20171226
  Receipt Date: 20171226
  Transmission Date: 20180321
  Serious: Yes (Hospitalization)
  Sender: FDA-Public Use
  Company Number: PHHY2017CN180664

PATIENT
  Age: 78 Year
  Sex: Female

DRUGS (2)
  1. LESCOL [Suspect]
     Active Substance: FLUVASTATIN SODIUM
     Indication: HYPERLIPIDAEMIA
     Dosage: 20 MG, QD
     Route: 048
  2. LESCOL [Suspect]
     Active Substance: FLUVASTATIN SODIUM
     Indication: HYPERTENSION
     Dosage: 40 MG, QD
     Route: 048

REACTIONS (3)
  - Hypotension [Unknown]
  - Blood pressure fluctuation [Unknown]
  - Wrong technique in product usage process [Unknown]
